FAERS Safety Report 5681908-6 (Version None)
Quarter: 2008Q1

REPORT INFORMATION
  Report Type: 
  Country: None (occurrence: None)
  Receive Date: 20080327
  Receipt Date: 20070322
  Transmission Date: 20080703
  Serious: Yes (Hospitalization, Other)
  Sender: FDA-Public Use
  Company Number: US-BAYER-US-2007-010331

PATIENT
  Age: 37 Year
  Sex: Female
  Weight: 68 kg

DRUGS (3)
  1. MIRENA [Suspect]
     Indication: CONTRACEPTION
     Route: 015
     Dates: start: 20040301, end: 20070321
  2. CLARINEX /USA/ [Concomitant]
     Indication: MULTIPLE ALLERGIES
     Dates: start: 20030101
  3. MAXIFED-G [Concomitant]
     Indication: MULTIPLE ALLERGIES
     Dates: start: 20030101

REACTIONS (6)
  - ACNE [None]
  - ECTOPIC PREGNANCY [None]
  - FATIGUE [None]
  - IRRITABILITY [None]
  - MOOD SWINGS [None]
  - WEIGHT INCREASED [None]
